FAERS Safety Report 9503045 (Version 2)
Quarter: 2013Q3

REPORT INFORMATION
  Report Type: Report from Study
  Country: PL (occurrence: PL)
  Receive Date: 20130906
  Receipt Date: 20130906
  Transmission Date: 20140515
  Serious: Yes (Other)
  Sender: FDA-Public Use
  Company Number: PHHO2010PL19261

PATIENT
  Age: 55 Year
  Sex: Male
  Weight: 113 kg

DRUGS (2)
  1. PLACEBO [Suspect]
     Indication: CORONARY ARTERY DISEASE
     Route: 048
     Dates: start: 20100224, end: 20101212
  2. ALISKIREN [Suspect]
     Dosage: 150 MG, UNK

REACTIONS (1)
  - Overdose [Not Recovered/Not Resolved]
